FAERS Safety Report 8385732 (Version 2)
Quarter: 2013Q2

REPORT INFORMATION
  Report Type: Spontaneous
  Country: US (occurrence: None)
  Receive Date: 20111221
  Receipt Date: 20121227
  Transmission Date: 20140414
  Serious: Yes (Other)
  Sender: FDA-Public Use
  Company Number: PHHY2011US19331

PATIENT
  Age: 73 Year
  Sex: Male
  Weight: 114.7 kg

DRUGS (2)
  1. EXJADE [Suspect]
     Indication: ANAEMIA
     Dosage: 2000 MG, ADILY, ORAL
     Route: 048
     Dates: start: 201010, end: 20110712
  2. EXJADE [Suspect]
     Indication: BLOOD COUNT ABNORMAL
     Dosage: 2000 MG, ADILY, ORAL
     Route: 048
     Dates: start: 201010, end: 20110712

REACTIONS (4)
  - CHOLELITHIASIS [None]
  - GALLBLADDER DISORDER [None]
  - VOMITING [None]
  - PAIN [None]
